FAERS Safety Report 19906417 (Version 1)
Quarter: 2021Q3

REPORT INFORMATION
  Report Type: Spontaneous
  Country: CA (occurrence: CA)
  Receive Date: 20210930
  Receipt Date: 20210930
  Transmission Date: 20211014
  Serious: Yes (Other)
  Sender: FDA-Public Use
  Company Number: CA-SAMSUNG BIOEPIS-SB-2021-23007

PATIENT
  Age: 75 Year
  Sex: Female

DRUGS (1)
  1. INFLIXIMAB [Suspect]
     Active Substance: INFLIXIMAB
     Indication: RHEUMATOID ARTHRITIS
     Route: 042

REACTIONS (5)
  - Pain [Recovered/Resolved]
  - Arthralgia [Recovered/Resolved]
  - Cystitis [Recovered/Resolved]
  - Rheumatoid arthritis [Recovered/Resolved]
  - Joint swelling [Recovered/Resolved]
